FAERS Safety Report 7027785-2 (Version None)
Quarter: 2010Q4

REPORT INFORMATION
  Report Type: 
  Country: None (occurrence: None)
  Receive Date: 20101005
  Receipt Date: 20100514
  Transmission Date: 20110411
  Serious: Yes (Hospitalization, Other)
  Sender: FDA-Public Use
  Company Number: US-BAYER-200938178NA

PATIENT
  Age: 30 Year
  Sex: Female
  Weight: 64 kg

DRUGS (12)
  1. YAZ [Suspect]
     Indication: ORAL CONTRACEPTION
     Dosage: TOTAL DAILY DOSE: 1 DF
     Route: 048
     Dates: start: 20070912, end: 20071109
  2. LEXAPRO [Concomitant]
  3. ADVAIR DISKUS 100/50 [Concomitant]
     Dates: start: 20070101
  4. LORATADINE [Concomitant]
     Dates: start: 20071018, end: 20071109
  5. ZANAFLEX [Concomitant]
  6. VITAMIN B12/IRON [Concomitant]
     Dates: start: 20071018, end: 20071109
  7. CALCIUM [Concomitant]
     Dates: start: 20071018, end: 20071109
  8. MULTI-VITAMIN [Concomitant]
     Dates: start: 20071018, end: 20071109
  9. ALBUTEROL [Concomitant]
     Dates: start: 20070101
  10. IBUPROFEN [Concomitant]
  11. DICLOXACILLIN [Concomitant]
  12. AMOIC.CLAV [Concomitant]
     Dates: start: 20070101

REACTIONS (9)
  - COUGH [None]
  - DEPRESSION [None]
  - DIZZINESS [None]
  - DYSPNOEA [None]
  - LOSS OF CONSCIOUSNESS [None]
  - PALPITATIONS [None]
  - PARAESTHESIA [None]
  - POST-TRAUMATIC STRESS DISORDER [None]
  - PULMONARY EMBOLISM [None]
